FAERS Safety Report 14829533 (Version 1)
Quarter: 2018Q2

REPORT INFORMATION
  Report Type: Spontaneous
  Country: DE (occurrence: DE)
  Receive Date: 20180430
  Receipt Date: 20180430
  Transmission Date: 20180711
  Serious: Yes (Hospitalization)
  Sender: FDA-Public Use
  Company Number: DE-PFIZER INC-2018175484

PATIENT
  Age: 69 Year
  Sex: Male

DRUGS (10)
  1. PROPAFENONE. [Suspect]
     Active Substance: PROPAFENONE
     Dosage: 150 MG, 2X/DAY
     Route: 065
     Dates: start: 201609
  2. ASPIRIN. [Concomitant]
     Active Substance: ASPIRIN
     Dosage: UNK
  3. HYDROCHLOROTHIAZID [Suspect]
     Active Substance: HYDROCHLOROTHIAZIDE
     Dosage: 12.5 MG, DAILY
     Route: 048
     Dates: start: 201609
  4. ALLOPURINOL. [Concomitant]
     Active Substance: ALLOPURINOL
     Dosage: UNK
  5. LEVOTHYROXIN [Concomitant]
     Active Substance: LEVOTHYROXINE
     Dosage: UNK
  6. RANITIDINE. [Suspect]
     Active Substance: RANITIDINE
     Dosage: 37.5 MG, DAILY
     Route: 065
     Dates: start: 201609
  7. RAMIPRIL. [Suspect]
     Active Substance: RAMIPRIL
     Dosage: 5 MG, 2X/DAY
     Route: 048
     Dates: start: 201609
  8. CLOPIDOGREL [Concomitant]
     Active Substance: CLOPIDOGREL BISULFATE
     Dosage: UNK
  9. METOPROLOL. [Suspect]
     Active Substance: METOPROLOL
     Dosage: 47.5 MG, 2X/DAY
     Route: 048
     Dates: start: 201609
  10. SIMVASTATIN. [Concomitant]
     Active Substance: SIMVASTATIN
     Dosage: UNK

REACTIONS (3)
  - Dizziness [Unknown]
  - Diplopia [Unknown]
  - Nausea [Unknown]
